FAERS Safety Report 4549475-8 (Version None)
Quarter: 2005Q1

REPORT INFORMATION
  Report Type: 
  Country: None (occurrence: None)
  Receive Date: 20050110
  Receipt Date: 20050110
  Transmission Date: 20050727
  Serious: No
  Sender: FDA-Public Use
  Company Number: None

PATIENT
  Age: 79 Year
  Sex: Female

DRUGS (9)
  1. ZITHROMAX [Suspect]
     Indication: PNEUMONIA
     Dosage: 500 MG QD INTRAVENOU
     Route: 042
     Dates: start: 20041230, end: 20050104
  2. SYNTHROID [Concomitant]
  3. ADVAIR DISKUS 100/50 [Concomitant]
  4. ROBITUSSIN [Concomitant]
  5. XOPENEX [Concomitant]
  6. UNASYN [Concomitant]
  7. TYLENOL [Concomitant]
  8. MYLANTA [Concomitant]
  9. MILK OF MAGNESIA [Concomitant]

REACTIONS (2)
  - ALANINE AMINOTRANSFERASE INCREASED [None]
  - ASPARTATE AMINOTRANSFERASE INCREASED [None]
